FAERS Safety Report 16834219 (Version 3)
Quarter: 2019Q4

REPORT INFORMATION
  Report Type: Spontaneous
  Country: US (occurrence: US)
  Receive Date: 20190920
  Receipt Date: 20191108
  Transmission Date: 20200122
  Serious: Yes (Hospitalization)
  Sender: FDA-Public Use
  Company Number: US-PFIZER INC-2019400973

PATIENT
  Age: 73 Year
  Sex: Male
  Weight: 90.72 kg

DRUGS (9)
  1. TORSEMED [Concomitant]
     Dosage: 50 MG, 2X/DAY
     Dates: start: 20180101
  2. BYSTOLIC [Suspect]
     Active Substance: NEBIVOLOL HYDROCHLORIDE
     Indication: ATRIAL FIBRILLATION
     Dosage: UNK (1/3 OF A 5 MG A DAY)
     Route: 048
  3. TRAMADOL. [Concomitant]
     Active Substance: TRAMADOL
     Indication: PAIN
     Dosage: 25 MG, 1X/DAY
  4. TAFAMIDIS [Suspect]
     Active Substance: TAFAMIDIS MEGLUMINE
     Indication: AMYLOIDOSIS
     Dosage: 61 MG, 1X/DAY
     Route: 048
     Dates: start: 20180420
  5. TAFAMIDIS [Suspect]
     Active Substance: TAFAMIDIS MEGLUMINE
     Indication: CARDIAC AMYLOIDOSIS
  6. BYSTOLIC [Suspect]
     Active Substance: NEBIVOLOL HYDROCHLORIDE
     Indication: HEART RATE ABNORMAL
     Dosage: 12.5 MG, 1X/DAY
     Route: 048
     Dates: start: 201908
  7. POTASSIUM [Concomitant]
     Active Substance: POTASSIUM
     Dosage: 20 MEQ, UNK
     Dates: start: 20180101
  8. CENTRUM [ASCORBIC ACID;BETACAROTENE;BIOTIN;CALCIUM;CHLORINE;CHROMIUM;C [Concomitant]
     Dosage: UNK
  9. TRAMADOL. [Concomitant]
     Active Substance: TRAMADOL
     Dosage: UNK, AS NEEDED

REACTIONS (4)
  - Muscular weakness [Not Recovered/Not Resolved]
  - Hypoaesthesia [Unknown]
  - Atrophy [Unknown]
  - Movement disorder [Unknown]

NARRATIVE: CASE EVENT DATE: 20190101
